FAERS Safety Report 5472581-0 (Version None)
Quarter: 2007Q4

REPORT INFORMATION
  Report Type: 
  Country: None (occurrence: None)
  Receive Date: 20071001
  Receipt Date: 20070228
  Transmission Date: 20080405
  Serious: No
  Sender: FDA-Public Use
  Company Number: US-ASTRAZENECA-2004UW18314

PATIENT
  Age: 67 Year
  Sex: Female
  Weight: 77.3 kg

DRUGS (2)
  1. ARIMIDEX [Suspect]
     Indication: BREAST CANCER
     Route: 048
     Dates: start: 20040101
  2. VIOXX [Concomitant]
     Indication: ARTHRALGIA

REACTIONS (3)
  - ARTHRALGIA [None]
  - ARTHRITIS [None]
  - TENDONITIS [None]
